FAERS Safety Report 6191188-3 (Version None)
Quarter: 2009Q2

REPORT INFORMATION
  Report Type: 
  Country: None (occurrence: None)
  Receive Date: 20090513
  Receipt Date: 20090513
  Transmission Date: 20091009
  Serious: Yes (Other)
  Sender: FDA-Public Use
  Company Number: None

PATIENT
  Sex: Male
  Weight: 119.7496 kg

DRUGS (1)
  1. LAMOTRIGINE [Suspect]
     Indication: SCHIZOAFFECTIVE DISORDER
     Dosage: 100 MG ONCE Q AM PO
     Route: 048
     Dates: start: 20090228

REACTIONS (4)
  - FEELING ABNORMAL [None]
  - FEELING JITTERY [None]
  - MOVEMENT DISORDER [None]
  - PRODUCT SUBSTITUTION ISSUE [None]
